FAERS Safety Report 9833374 (Version 1)
Quarter: 2014Q1

REPORT INFORMATION
  Report Type: Spontaneous
  Country: US (occurrence: US)
  Receive Date: 20140121
  Receipt Date: 20140121
  Transmission Date: 20141002
  Serious: Yes (Death, Hospitalization)
  Sender: FDA-Public Use
  Company Number: US-JNJFOC-20140106112

PATIENT
  Age: 27 Year
  Sex: Male

DRUGS (1)
  1. ACETYL SALICYLIC ACID [Suspect]
     Indication: PRODUCT USED FOR UNKNOWN INDICATION
     Route: 048

REACTIONS (7)
  - Intentional overdose [Fatal]
  - Acute psychosis [Unknown]
  - Dyspnoea [Unknown]
  - Hypoxia [Unknown]
  - Bradycardia [Unknown]
  - Heart rate increased [Unknown]
  - Pyrexia [Unknown]
